FAERS Safety Report 7865023-9 (Version None)
Quarter: 2011Q4

REPORT INFORMATION
  Report Type: 
  Country: None (occurrence: None)
  Receive Date: 20111028
  Receipt Date: 20101001
  Transmission Date: 20120403
  Serious: No
  Sender: FDA-Public Use
  Company Number: US-GLAXOSMITHKLINE-A0884509A

PATIENT
  Age: 70 Year
  Sex: Female

DRUGS (17)
  1. ATROVENT [Concomitant]
  2. ASCORBIC ACID [Concomitant]
  3. PEPCID [Concomitant]
  4. NICOMIDE [Concomitant]
  5. CALCITONIN SALMON [Concomitant]
  6. GLUCOSAMINE + CHONDROITIN [Concomitant]
  7. VITAMIN E [Concomitant]
  8. FLOVENT [Suspect]
     Indication: ASTHMA
     Dosage: 1PUFF TWICE PER DAY
     Route: 055
     Dates: start: 20110623
  9. SEREVENT [Concomitant]
  10. SINGULAIR [Concomitant]
  11. VITAMIN D [Concomitant]
  12. EVISTA [Concomitant]
  13. CALCIUM CARBONATE [Concomitant]
  14. UNSPECIFIED MEDICATION [Concomitant]
  15. ADVAIR DISKUS 100/50 [Suspect]
     Indication: ASTHMA
     Dosage: 1PUFF TWICE PER DAY
     Route: 055
     Dates: start: 20100922, end: 20100927
  16. SIMVASTATIN [Concomitant]
  17. VITAMIN TAB [Concomitant]

REACTIONS (9)
  - DISTURBANCE IN ATTENTION [None]
  - IMPAIRED DRIVING ABILITY [None]
  - LIP PAIN [None]
  - DIZZINESS [None]
  - TOOTHACHE [None]
  - BALANCE DISORDER [None]
  - GLOSSODYNIA [None]
  - DRY MOUTH [None]
  - HEADACHE [None]
